FAERS Safety Report 20974308 (Version 2)
Quarter: 2022Q3

REPORT INFORMATION
  Report Type: Spontaneous
  Country: NL (occurrence: NL)
  Receive Date: 20220617
  Receipt Date: 20220704
  Transmission Date: 20221026
  Serious: Yes (Hospitalization, Other)
  Sender: FDA-Public Use
  Company Number: NL-TEVA-2022-NL-2045982

PATIENT
  Age: 45 Year
  Sex: Female
  Weight: 61 kg

DRUGS (4)
  1. FREMANEZUMAB [Suspect]
     Active Substance: FREMANEZUMAB
     Indication: Migraine
     Route: 058
  2. ELETRIPTAN [Concomitant]
     Active Substance: ELETRIPTAN
     Indication: Migraine
     Route: 048
     Dates: start: 20190326
  3. ETORICOXIB [Concomitant]
     Active Substance: ETORICOXIB
     Indication: Migraine
     Route: 048
     Dates: start: 20191203
  4. Macrogol electrolytes [Concomitant]
     Indication: Constipation
     Dosage: 1 SACHET
     Route: 065
     Dates: start: 20220125

REACTIONS (8)
  - Cerebral infarction [Recovering/Resolving]
  - Cerebellar infarction [Recovering/Resolving]
  - Vertigo [Recovering/Resolving]
  - Nausea [Recovering/Resolving]
  - Balance disorder [Recovering/Resolving]
  - Hemiparesis [Not Recovered/Not Resolved]
  - Slow speech [Not Recovered/Not Resolved]
  - Inappropriate schedule of product administration [Unknown]

NARRATIVE: CASE EVENT DATE: 20220101
